FAERS Safety Report 5496343-3 (Version None)
Quarter: 2007Q4

REPORT INFORMATION
  Report Type: 
  Country: None (occurrence: None)
  Receive Date: 20071025
  Receipt Date: 20070328
  Transmission Date: 20080405
  Serious: Yes (Other)
  Sender: FDA-Public Use
  Company Number: A0645038A

PATIENT
  Age: 73 Year
  Sex: Female

DRUGS (6)
  1. ADVAIR DISKUS 100/50 [Suspect]
     Indication: CHRONIC OBSTRUCTIVE PULMONARY DISEASE
     Route: 055
     Dates: start: 20050101
  2. POTASSIUM CHLORIDE [Concomitant]
  3. AMILORIDE HCL + HYDROCHLOROTHIAZIDE [Concomitant]
  4. ESTRADIOL [Concomitant]
  5. THYROID TAB [Concomitant]
  6. LIPITOR [Concomitant]

REACTIONS (1)
  - CATARACT [None]
